FAERS Safety Report 24645493 (Version 2)
Quarter: 2024Q4

REPORT INFORMATION
  Report Type: Spontaneous
  Country: US (occurrence: US)
  Receive Date: 20241121
  Receipt Date: 20241204
  Transmission Date: 20250115
  Serious: Yes (Hospitalization)
  Sender: TEVA
  Company Number: US-TEVA-VS-3265172

PATIENT
  Age: 80 Year
  Sex: Female

DRUGS (3)
  1. IBUPROFEN [Suspect]
     Active Substance: IBUPROFEN
     Indication: Product used for unknown indication
     Route: 065
  2. ACETAMINOPHEN [Suspect]
     Active Substance: ACETAMINOPHEN
     Indication: Product used for unknown indication
     Route: 065
  3. CEPHALEXIN [Suspect]
     Active Substance: CEPHALEXIN
     Indication: Antibiotic therapy
     Route: 065

REACTIONS (2)
  - Drug eruption [Unknown]
  - Urticaria [Unknown]
